FAERS Safety Report 10424603 (Version 2)
Quarter: 2014Q3

REPORT INFORMATION
  Report Type: Spontaneous
  Country: US (occurrence: US)
  Receive Date: 20140902
  Receipt Date: 20140902
  Transmission Date: 20150326
  Serious: Yes (Hospitalization, Other)
  Sender: FDA-Public Use
  Company Number: US-009507513-2009SP021064

PATIENT
  Sex: Female
  Weight: 65.77 kg

DRUGS (3)
  1. COSOPT [Concomitant]
     Active Substance: DORZOLAMIDE HYDROCHLORIDE\TIMOLOL MALEATE
  2. NUVARING [Suspect]
     Active Substance: ETHINYL ESTRADIOL\ETONOGESTREL
     Indication: MENSTRUATION IRREGULAR
     Route: 067
     Dates: start: 200701, end: 200708
  3. SYNTHROID [Concomitant]
     Active Substance: LEVOTHYROXINE SODIUM
     Dates: start: 1997

REACTIONS (14)
  - Hypercoagulation [Unknown]
  - Weight decreased [Unknown]
  - Lung infiltration [Unknown]
  - Tricuspid valve incompetence [Recovering/Resolving]
  - Vaginal haemorrhage [Unknown]
  - Pulmonary embolism [Recovering/Resolving]
  - Hepatic cyst [Unknown]
  - Neoplasm malignant [Unknown]
  - Ovarian cyst [Recovered/Resolved]
  - Infection [Unknown]
  - Off label use [Unknown]
  - Pulmonary hypertension [Unknown]
  - Cerumen impaction [Unknown]
  - Hypokalaemia [Unknown]

NARRATIVE: CASE EVENT DATE: 200703
